FAERS Safety Report 5373451-9 (Version None)
Quarter: 2007Q2

REPORT INFORMATION
  Report Type: 
  Country: None (occurrence: None)
  Receive Date: 20070626
  Receipt Date: 20070626
  Transmission Date: 20071010
  Serious: No
  Sender: FDA-Public Use
  Company Number: None

PATIENT
  Age: 62 Year
  Sex: Male
  Weight: 110.6777 kg

DRUGS (3)
  1. PROPOFOL [Suspect]
     Indication: ANAESTHESIA
     Dosage: IV
     Route: 042
  2. FENTANYL [Suspect]
     Dosage: 50 MCG X1 IV
     Route: 042
  3. MIDAZOLAM HCL [Suspect]
     Dosage: 1MG X1 IV
     Route: 042

REACTIONS (3)
  - CHILLS [None]
  - POST PROCEDURAL COMPLICATION [None]
  - POSTOPERATIVE FEVER [None]
